FAERS Safety Report 7850769-9 (Version None)
Quarter: 2011Q4

REPORT INFORMATION
  Report Type: 
  Country: None (occurrence: None)
  Receive Date: 20111021
  Receipt Date: 20111007
  Transmission Date: 20120403
  Serious: Yes (Life-Threatening)
  Sender: FDA-Public Use
  Company Number: TPA2011A06277

PATIENT
  Age: 78 Year
  Sex: Male

DRUGS (4)
  1. LANSOPRAZOLE [Concomitant]
  2. BLOPRESS (CANDESARTAN CILEXETIL) [Concomitant]
  3. FEBURIC (FEBUXOSTAT) [Suspect]
     Indication: HYPERURICAEMIA
     Dosage: 10 MG (10 MG,1 IN 1 D) PER ORAL
     Route: 048
     Dates: start: 20110915, end: 20110916
  4. SELBEX (TEPRENONE) [Concomitant]

REACTIONS (5)
  - BLOOD PRESSURE DECREASED [None]
  - ASTHENIA [None]
  - HEPATIC FUNCTION ABNORMAL [None]
  - MALAISE [None]
  - SYNCOPE [None]
